FAERS Safety Report 7438712-8 (Version None)
Quarter: 2011Q2

REPORT INFORMATION
  Report Type: 
  Country: None (occurrence: None)
  Receive Date: 20110426
  Receipt Date: 20110421
  Transmission Date: 20111010
  Serious: Yes (Other)
  Sender: FDA-Public Use
  Company Number: FI-PFIZER INC-2010068211

PATIENT
  Age: 25 Year
  Sex: Female

DRUGS (10)
  1. ZELDOX [Suspect]
     Indication: ANXIETY
     Dosage: 40 MG, 2X/DAY
     Dates: start: 20100526, end: 20100601
  2. ZELDOX [Suspect]
     Indication: DISSOCIATIVE DISORDER
  3. ZOLOFT [Suspect]
     Indication: ANXIETY
     Dosage: 100 MG, 1X/DAY X 3.5 MONTHS
     Route: 048
     Dates: start: 20100201
  4. EFFEXOR XR [Suspect]
     Indication: DISSOCIATIVE DISORDER
     Dosage: 75 MG, 1X/DAY
     Route: 048
     Dates: start: 20100601, end: 20100101
  5. VENLAFAXINE [Suspect]
     Dosage: UNK
     Dates: start: 20100701
  6. PROMAZIN [Concomitant]
     Dosage: UNK (USED ONCE IN AWHILE)
  7. THYROXIN [Concomitant]
     Dosage: UNK (USED ONCE IN AWHILE)
  8. ZOLOFT [Suspect]
     Indication: DISSOCIATIVE DISORDER
     Dosage: 50 MG, 1X/DAY
     Route: 048
     Dates: start: 20100501, end: 20100501
  9. OXEPAM [Concomitant]
     Dosage: UNK
  10. ZYPREXA [Concomitant]

REACTIONS (26)
  - DELIRIUM [None]
  - CONFUSIONAL STATE [None]
  - HYPOMANIA [None]
  - AGGRESSION [None]
  - SUICIDAL IDEATION [None]
  - URINARY INCONTINENCE [None]
  - DYSPNOEA [None]
  - TENSION [None]
  - URTICARIA [None]
  - FATIGUE [None]
  - ANGER [None]
  - AGITATION [None]
  - RESTLESSNESS [None]
  - DYSKINESIA [None]
  - MENTAL IMPAIRMENT [None]
  - FLIGHT OF IDEAS [None]
  - SCREAMING [None]
  - EMOTIONAL DISORDER [None]
  - DRUG WITHDRAWAL SYNDROME [None]
  - WEIGHT INCREASED [None]
  - AFFECT LABILITY [None]
  - MUSCULOSKELETAL STIFFNESS [None]
  - HYPERPHAGIA [None]
  - DRUG INEFFECTIVE [None]
  - ABNORMAL BEHAVIOUR [None]
  - UNEMPLOYMENT [None]
